FAERS Safety Report 4665774-3 (Version None)
Quarter: 2005Q2

REPORT INFORMATION
  Report Type: 
  Country: None (occurrence: None)
  Receive Date: 20050517
  Receipt Date: 20050517
  Transmission Date: 20051028
  Serious: Yes (Hospitalization)
  Sender: FDA-Public Use
  Company Number: None

PATIENT
  Age: 77 Year
  Sex: Male
  Weight: 64.4108 kg

DRUGS (11)
  1. AUGMENTIN '125' [Suspect]
     Indication: LOCALISED INFECTION
     Dosage: 1 TAB BID ORAL
     Route: 048
     Dates: start: 20050428, end: 20050504
  2. VERAPAMIL LA [Concomitant]
  3. COUMADIN [Concomitant]
  4. ACCUPRIL [Concomitant]
  5. DEMADEX [Concomitant]
  6. MEVACOR [Concomitant]
  7. GLYBURIDE [Concomitant]
  8. GLUCOPHAGE [Concomitant]
  9. AVANDIA [Concomitant]
  10. ARANESP [Concomitant]
  11. XALATAN [Concomitant]

REACTIONS (8)
  - AZOTAEMIA [None]
  - DEHYDRATION [None]
  - HYPERKALAEMIA [None]
  - HYPOGLYCAEMIA [None]
  - RENAL FAILURE [None]
  - SYNCOPE [None]
  - THERAPEUTIC RESPONSE UNEXPECTED WITH DRUG SUBSTITUTION [None]
  - URINE OUTPUT DECREASED [None]
